FAERS Safety Report 23409825 (Version 2)
Quarter: 2024Q1

REPORT INFORMATION
  Report Type: Spontaneous
  Country: US (occurrence: US)
  Receive Date: 20240117
  Receipt Date: 20240301
  Transmission Date: 20240410
  Serious: No
  Sender: FDA-Public Use
  Company Number: US-PFIZER INC-202400013001

PATIENT
  Age: 88 Year
  Sex: Female
  Weight: 71.67 kg

DRUGS (7)
  1. IBRANCE [Suspect]
     Active Substance: PALBOCICLIB
     Indication: Breast cancer
     Dosage: 1 TABLET ONCE DAILY FOR 21 DAYS FOLLOWED BY 7 DAYS OFF, MAKING A 28 DAY CYCLE TIME
     Route: 048
     Dates: start: 202301, end: 20230530
  2. IBRANCE [Suspect]
     Active Substance: PALBOCICLIB
     Dosage: 1 TABLET FOR 21 DAYS ON, FOLLOWED BY 7 DAYS OFF
     Dates: start: 20230310
  3. IBRANCE [Suspect]
     Active Substance: PALBOCICLIB
     Dosage: 1 TABLET FOR 21 DAYS ON, FOLLOWED BY 7 DAYS OFF
     Dates: end: 202306
  4. LETROZOLE [Concomitant]
     Active Substance: LETROZOLE
     Dosage: 2 MG, 1X/DAY (AT BEDTIME)
     Dates: start: 20230412
  5. TELMISARTAN [Concomitant]
     Active Substance: TELMISARTAN
     Indication: Hypertension
     Dosage: AT BEDTIME
     Dates: start: 2018
  6. CELECOXIB [Concomitant]
     Active Substance: CELECOXIB
     Dosage: AT BEDTIME
     Dates: start: 20231126
  7. MONTELUKAST [Concomitant]
     Active Substance: MONTELUKAST SODIUM
     Dosage: AT BEDTIME
     Dates: start: 2018

REACTIONS (4)
  - White blood cell count decreased [Recovered/Resolved]
  - Dysphonia [Unknown]
  - Hypersensitivity [Unknown]
  - Decreased appetite [Unknown]

NARRATIVE: CASE EVENT DATE: 20230310
